FAERS Safety Report 21585358 (Version 1)
Quarter: 2022Q4

REPORT INFORMATION
  Report Type: Spontaneous
  Country: US (occurrence: US)
  Receive Date: 20221111
  Receipt Date: 20221111
  Transmission Date: 20230113
  Serious: No
  Sender: FDA-Public Use
  Company Number: US-NOVOPROD-885342

PATIENT
  Sex: Female

DRUGS (2)
  1. TRESIBA [Suspect]
     Active Substance: INSULIN DEGLUDEC
     Indication: Product used for unknown indication
     Dosage: UNK
     Route: 058
  2. HUMALOG [Suspect]
     Active Substance: INSULIN LISPRO
     Indication: Product used for unknown indication
     Dosage: UNK

REACTIONS (3)
  - COVID-19 [Not Recovered/Not Resolved]
  - Malaise [Unknown]
  - Wrong product administered [Recovered/Resolved]
